FAERS Safety Report 10718775 (Version 2)
Quarter: 2015Q1

REPORT INFORMATION
  Report Type: Spontaneous
  Country: US (occurrence: US)
  Receive Date: 20150119
  Receipt Date: 20150119
  Transmission Date: 20150721
  Serious: No
  Sender: FDA-Public Use
  Company Number: US-UNITED THERAPEUTICS-UNT-2014-005382

PATIENT
  Sex: Female
  Weight: 102.49 kg

DRUGS (3)
  1. REMODULIN [Suspect]
     Active Substance: TREPROSTINIL
     Indication: COR PULMONALE CHRONIC
     Dosage: 0.025 ?G/KG/MIN, CONTINUING
     Route: 058
     Dates: start: 20140704
  2. TRACLEER [Concomitant]
     Active Substance: BOSENTAN\BOSENTAN MONOHYDRATE
     Indication: PRODUCT USED FOR UNKNOWN INDICATION
  3. REVATIO [Suspect]
     Active Substance: SILDENAFIL CITRATE
     Indication: PRODUCT USED FOR UNKNOWN INDICATION

REACTIONS (2)
  - Abdominal discomfort [Unknown]
  - Malaise [Unknown]

NARRATIVE: CASE EVENT DATE: 2014
